FAERS Safety Report 21815796 (Version 1)
Quarter: 2023Q1

REPORT INFORMATION
  Report Type: Spontaneous
  Country: US (occurrence: US)
  Receive Date: 20230104
  Receipt Date: 20230104
  Transmission Date: 20230417
  Serious: No
  Sender: FDA-Public Use
  Company Number: US-STRIDES ARCOLAB LIMITED-2022SP010279

PATIENT
  Age: 74 Year
  Sex: Male

DRUGS (5)
  1. HYDROCORTISONE [Suspect]
     Active Substance: HYDROCORTISONE
     Indication: Seborrhoeic dermatitis
     Dosage: UNK, CREAM
     Route: 061
  2. DOXYCYCLINE [Suspect]
     Active Substance: DOXYCYCLINE
     Indication: Seborrhoeic dermatitis
     Dosage: 100 MILLIGRAM PER DAY
     Route: 065
  3. KETOCONAZOLE [Suspect]
     Active Substance: KETOCONAZOLE
     Indication: Seborrhoeic dermatitis
     Dosage: UNK, CREAM
     Route: 061
  4. DESONIDE [Suspect]
     Active Substance: DESONIDE
     Indication: Seborrhoeic dermatitis
     Dosage: UNK, CREAM
     Route: 061
  5. METRONIDAZOLE [Suspect]
     Active Substance: METRONIDAZOLE
     Indication: Seborrhoeic dermatitis
     Dosage: UNK, GEL
     Route: 061

REACTIONS (2)
  - Drug ineffective [Unknown]
  - Off label use [Unknown]
